FAERS Safety Report 16914971 (Version 10)
Quarter: 2023Q2

REPORT INFORMATION
  Report Type: Spontaneous
  Country: PT (occurrence: PT)
  Receive Date: 20191014
  Receipt Date: 20230620
  Transmission Date: 20230722
  Serious: Yes (Death, Life-Threatening, Hospitalization, Other)
  Sender: FDA-Public Use
  Company Number: PT-MYLANLABS-2019M1095933

PATIENT
  Age: 47 Year
  Sex: Male

DRUGS (12)
  1. QUETIAPINE [Interacting]
     Active Substance: QUETIAPINE
     Indication: Schizophrenia
     Dosage: UNK
     Route: 065
  2. QUETIAPINE [Interacting]
     Active Substance: QUETIAPINE
     Indication: Intellectual disability
  3. CARBAMAZEPINE [Interacting]
     Active Substance: CARBAMAZEPINE
     Indication: Schizophrenia
     Dosage: UNK
     Route: 065
  4. HALOPERIDOL [Interacting]
     Active Substance: HALOPERIDOL
     Indication: Schizophrenia
     Dosage: UNK
     Route: 065
  5. HALOPERIDOL [Interacting]
     Active Substance: HALOPERIDOL
     Indication: Intellectual disability
  6. ZOTEPINE [Interacting]
     Active Substance: ZOTEPINE
     Indication: Schizophrenia
     Dosage: UNK
     Route: 065
  7. ZOTEPINE [Interacting]
     Active Substance: ZOTEPINE
     Indication: Intellectual disability
  8. CYAMEMAZINE [Interacting]
     Active Substance: CYAMEMAZINE
     Indication: Schizophrenia
     Dosage: UNK
     Route: 065
  9. CYAMEMAZINE [Interacting]
     Active Substance: CYAMEMAZINE
     Indication: Intellectual disability
  10. BIPERIDEN [Interacting]
     Active Substance: BIPERIDEN
     Indication: Schizophrenia
     Dosage: UNK
     Route: 065
  11. BIPERIDEN [Interacting]
     Active Substance: BIPERIDEN
     Indication: Intellectual disability
  12. DOMPERIDONE [Concomitant]
     Active Substance: DOMPERIDONE
     Indication: Schizophrenia
     Dosage: UNK
     Route: 065

REACTIONS (6)
  - Death [Fatal]
  - Shock [Fatal]
  - Colitis ischaemic [Fatal]
  - Depressed level of consciousness [Fatal]
  - Colectomy total [Fatal]
  - Drug interaction [Unknown]
